FAERS Safety Report 4808703-1 (Version None)
Quarter: 2005Q4

REPORT INFORMATION
  Report Type: 
  Country: None (occurrence: None)
  Receive Date: 20051025
  Receipt Date: 20050811
  Transmission Date: 20060501
  Serious: Yes (Other)
  Sender: FDA-Public Use
  Company Number: 200512322JP

PATIENT
  Age: 66 Year
  Sex: Female
  Weight: 56 kg

DRUGS (7)
  1. ARAVA [Suspect]
     Indication: RHEUMATOID ARTHRITIS
     Route: 048
     Dates: start: 20040615, end: 20040823
  2. ENDOXAN [Suspect]
     Indication: RHEUMATOID ARTHRITIS
     Dosage: DOSE: 50MG/WEEK
     Route: 048
     Dates: start: 19990831, end: 20040614
  3. GASMOTIN [Concomitant]
     Indication: GASTRITIS
     Route: 048
     Dates: start: 20020409
  4. TROXSIN [Concomitant]
     Indication: GASTRITIS
     Route: 048
     Dates: start: 20020409
  5. LIPOVAS [Concomitant]
     Indication: HYPERLIPIDAEMIA
     Route: 048
     Dates: start: 20030408
  6. DOGMATYL [Concomitant]
     Indication: DEPRESSION
     Route: 048
     Dates: start: 20040406
  7. MYSLEE [Concomitant]
     Indication: INSOMNIA
     Route: 048
     Dates: start: 20040217, end: 20040824

REACTIONS (2)
  - BLADDER NEOPLASM [None]
  - DIZZINESS [None]
